FAERS Safety Report 5531475-2 (Version None)
Quarter: 2007Q4

REPORT INFORMATION
  Report Type: 
  Country: None (occurrence: None)
  Receive Date: 20071203
  Receipt Date: 20071126
  Transmission Date: 20080405
  Serious: Yes (Hospitalization)
  Sender: FDA-Public Use
  Company Number: JP-ELI_LILLY_AND_COMPANY-JP200711006444

PATIENT
  Age: 80 Year
  Sex: Female

DRUGS (5)
  1. ZYPREXA [Suspect]
     Indication: MANIA
     Dosage: 10 MG, DAILY (1/D)
     Route: 048
     Dates: start: 20070101, end: 20071101
  2. ZYPREXA [Suspect]
     Dosage: 20 MG, DAILY (1/D)
     Route: 048
     Dates: start: 20071101, end: 20071124
  3. ZYPREXA [Suspect]
     Dosage: 10 MG, DAILY (1/D)
     Route: 048
     Dates: start: 20071125, end: 20071126
  4. CRAVIT [Concomitant]
  5. GASTER [Concomitant]
     Dosage: 20 MG, DAILY (1/D)
     Route: 048

REACTIONS (2)
  - GRANULOCYTE COUNT DECREASED [None]
  - PYREXIA [None]
